FAERS Safety Report 7565289-9 (Version None)
Quarter: 2011Q2

REPORT INFORMATION
  Report Type: 
  Country: None (occurrence: None)
  Receive Date: 20110623
  Receipt Date: 20110617
  Transmission Date: 20111010
  Serious: Yes (Death)
  Sender: FDA-Public Use
  Company Number: JO-ELI_LILLY_AND_COMPANY-JO201106005592

PATIENT
  Sex: Male

DRUGS (2)
  1. CISPLATIN [Concomitant]
     Indication: LUNG ADENOCARCINOMA
     Dosage: 75 MG/M2, UNKNOWN
  2. PEMETREXED [Suspect]
     Indication: LUNG ADENOCARCINOMA
     Dosage: 500 MG/M2, EVERY 21 DAYS
     Route: 042
     Dates: start: 20101201

REACTIONS (2)
  - SKIN HYPERPIGMENTATION [None]
  - BONE MARROW FAILURE [None]
